FAERS Safety Report 7097411-5 (Version None)
Quarter: 2010Q4

REPORT INFORMATION
  Report Type: 
  Country: None (occurrence: None)
  Receive Date: 20101111
  Receipt Date: 20101110
  Transmission Date: 20110411
  Serious: Yes (Other)
  Sender: FDA-Public Use
  Company Number: US-PFIZER INC-2010144936

PATIENT
  Age: 35 Year
  Sex: Male

DRUGS (3)
  1. CABERGOLINE [Suspect]
     Indication: PROLACTINOMA
     Dosage: 5 MG, WEEKLY
  2. BROMOCRIPTINE [Suspect]
     Indication: PROLACTINOMA
  3. QUINAGOLIDE [Suspect]
     Indication: PROLACTINOMA

REACTIONS (2)
  - IMPULSIVE BEHAVIOUR [None]
  - PATHOLOGICAL GAMBLING [None]
